FAERS Safety Report 19266133 (Version 1)
Quarter: 2021Q2

REPORT INFORMATION
  Report Type: Spontaneous
  Country: HU (occurrence: HU)
  Receive Date: 20210517
  Receipt Date: 20210517
  Transmission Date: 20210717
  Serious: Yes (Other)
  Sender: FDA-Public Use
  Company Number: NVSC2021HU101346

PATIENT

DRUGS (3)
  1. LETROZOLE. [Suspect]
     Active Substance: LETROZOLE
     Indication: BREAST CANCER STAGE IV
     Dosage: 2.5 MG, QD
     Route: 048
     Dates: start: 202001
  2. RIBOCICLIB. [Suspect]
     Active Substance: RIBOCICLIB
     Dosage: 400 MG
     Route: 065
  3. RIBOCICLIB. [Suspect]
     Active Substance: RIBOCICLIB
     Indication: BREAST CANCER STAGE IV
     Dosage: 600 MG (FOR 21 DAYS, FOLLOWED BY A 7?DAY BREAK PERIOD)
     Route: 065
     Dates: start: 202001

REACTIONS (6)
  - Neutropenia [Recovered/Resolved]
  - Upper respiratory tract infection [Unknown]
  - Fatigue [Unknown]
  - Therapeutic response decreased [Unknown]
  - COVID-19 pneumonia [Unknown]
  - COVID-19 [Unknown]
